FAERS Safety Report 5604387-3 (Version None)
Quarter: 2008Q1

REPORT INFORMATION
  Report Type: 
  Country: None (occurrence: None)
  Receive Date: 20080128
  Receipt Date: 20080118
  Transmission Date: 20080703
  Serious: Yes (Other)
  Sender: FDA-Public Use
  Company Number: PL-JNJFOC-20080104708

PATIENT
  Sex: Female
  Weight: 52 kg

DRUGS (1)
  1. ORTHO EVRA [Suspect]
     Indication: DYSMENORRHOEA
     Dosage: 1 PATCH EVERY 7 DAYS FOR 3 WEEKS THEN 7 DAYS BREAK
     Route: 062
     Dates: start: 20060401, end: 20070401

REACTIONS (1)
  - ARRHYTHMIA [None]
